FAERS Safety Report 7584236-7 (Version None)
Quarter: 2011Q2

REPORT INFORMATION
  Report Type: 
  Country: None (occurrence: None)
  Receive Date: 20110623
  Receipt Date: 20110616
  Transmission Date: 20111010
  Serious: Yes (Hospitalization)
  Sender: FDA-Public Use
  Company Number: SP02281

PATIENT
  Age: 68 Year
  Sex: Female
  Weight: 53.5244 kg

DRUGS (5)
  1. NPH INSULIN [Concomitant]
  2. OSMOPREP [Suspect]
     Indication: BOWEL PREPARATION
     Dosage: (32 TABLETS), ORAL
     Route: 048
     Dates: start: 20081109, end: 20081110
  3. SYNTHROID [Concomitant]
  4. VERPAMIL HCL [Concomitant]
  5. REGULAR INSULIN [Concomitant]

REACTIONS (17)
  - PANCREATITIS CHRONIC [None]
  - PANCREATIC ATROPHY [None]
  - ARTERIOSCLEROSIS [None]
  - INFLUENZA [None]
  - RENAL CYST [None]
  - CHOLELITHIASIS [None]
  - PANCREATIC PSEUDOCYST [None]
  - NEPHRITIS ALLERGIC [None]
  - HAEMOGLOBIN DECREASED [None]
  - DRUG ADMINISTRATION ERROR [None]
  - PAIN [None]
  - ACUTE PHOSPHATE NEPHROPATHY [None]
  - DIABETIC NEPHROPATHY [None]
  - DEHYDRATION [None]
  - HAEMODIALYSIS [None]
  - RENAL FAILURE ACUTE [None]
  - INTERCAPILLARY GLOMERULOSCLEROSIS [None]
